FAERS Safety Report 7814861-7 (Version None)
Quarter: 2011Q4

REPORT INFORMATION
  Report Type: 
  Country: None (occurrence: None)
  Receive Date: 20111014
  Receipt Date: 20111012
  Transmission Date: 20120403
  Serious: Yes (Other)
  Sender: FDA-Public Use
  Company Number: GXKR2011DE03042

PATIENT
  Age: 56 Year
  Sex: Female

DRUGS (1)
  1. DOXEPIN HCL [Suspect]
     Dosage: 50 MG, IN THE EVENING QD
     Route: 048

REACTIONS (2)
  - FOOT FRACTURE [None]
  - DIARRHOEA [None]
